FAERS Safety Report 4916756-5 (Version None)
Quarter: 2006Q1

REPORT INFORMATION
  Report Type: 
  Country: None (occurrence: None)
  Receive Date: 20060214
  Receipt Date: 20060201
  Transmission Date: 20060701
  Serious: Yes (Other)
  Sender: FDA-Public Use
  Company Number: 2005162683

PATIENT
  Age: 68 Year
  Sex: Male
  Weight: 52 kg

DRUGS (13)
  1. VFEND [Suspect]
     Indication: BRONCHOPULMONARY ASPERGILLOSIS
     Dosage: 400 MG (200 MG, 2 IN 1 D), INTRAVENOUS
     Route: 042
     Dates: start: 20051121, end: 20051124
  2. FENTANYL CITRATE [Concomitant]
  3. ROPIVACAINE HYDROCHLORIDE (ROPIVACAINE HYDROCHLORIDE) [Concomitant]
  4. DIASTASE, TAKA (DIASTASE, TAKA) [Concomitant]
  5. MUCOSAL (ACETYLCYSTEINE) [Concomitant]
  6. CLARITHROMYCIN [Concomitant]
  7. SENNOSIDES (SENNOSIDE A+B) [Concomitant]
  8. MAGNESIUM OXIDE (MAGNESIUM OXIDE) [Concomitant]
  9. GLORIAMIN (AZULENE SODIUM SULFONATE, LEVOGLUTAMIDE) [Concomitant]
  10. LOXOPROFEN SODIUM (LOXOPROFEN SODIUM) [Concomitant]
  11. VANCOMYCIN [Concomitant]
  12. ALESION (EPINASTINE HYDROCHLORIDE) [Concomitant]
  13. NOVORAPID (INSULIN ASPART) [Concomitant]

REACTIONS (2)
  - ERYTHEMA [None]
  - HALLUCINATION [None]
